FAERS Safety Report 15625108 (Version 8)
Quarter: 2019Q2

REPORT INFORMATION
  Report Type: Report from Study
  Country: FR (occurrence: FR)
  Receive Date: 20181116
  Receipt Date: 20190504
  Transmission Date: 20190711
  Serious: Yes (Death, Life-Threatening, Hospitalization, Disabling, Other)
  Sender: FDA-Public Use
  Company Number: PHHY2018FR115201

PATIENT
  Age: 19 Year
  Sex: Male
  Weight: 67 kg

DRUGS (3)
  1. CTL019 [Suspect]
     Active Substance: TISAGENLECLEUCEL
     Indication: ACUTE LYMPHOCYTIC LEUKAEMIA RECURRENT
     Dosage: 1.0955 108 CAR POSITIVE VIABLE T-CELLS IN 12 ML BAG
     Route: 042
     Dates: start: 20180912
  2. AMBISOME [Concomitant]
     Active Substance: AMPHOTERICIN B
     Indication: FUNGAL INFECTION
     Dosage: 450 MG, QD
     Route: 042
     Dates: start: 20181030
  3. CASPOFUNGINUM [Concomitant]
     Indication: FUNGAL INFECTION
     Dosage: 50 MG, QD
     Route: 042
     Dates: start: 20181103

REACTIONS (22)
  - Myocarditis [Recovered/Resolved]
  - BK virus infection [Unknown]
  - Hypogammaglobulinaemia [Not Recovered/Not Resolved]
  - Hypoxia [Recovered/Resolved]
  - Pyrexia [Recovered/Resolved]
  - Hypotension [Recovered/Resolved]
  - Febrile neutropenia [Not Recovered/Not Resolved]
  - Encephalopathy [Recovered/Resolved]
  - Bone marrow failure [Not Recovered/Not Resolved]
  - Bacteraemia [Recovered/Resolved]
  - Aspergillus infection [Not Recovered/Not Resolved]
  - Disseminated intravascular coagulation [Recovered/Resolved]
  - Cytokine release syndrome [Recovered/Resolved]
  - Malignant neoplasm progression [Fatal]
  - Infection reactivation [Not Recovered/Not Resolved]
  - Cytopenia [Not Recovered/Not Resolved]
  - Agitation [Recovered/Resolved]
  - Acute lymphocytic leukaemia recurrent [Fatal]
  - Neurological symptom [Recovered/Resolved]
  - Adenovirus infection [Unknown]
  - Gastrointestinal haemorrhage [Recovered/Resolved]
  - Confusional state [Recovered/Resolved]

NARRATIVE: CASE EVENT DATE: 20180912
